FAERS Safety Report 9994820 (Version 1)
Quarter: 2014Q1

REPORT INFORMATION
  Report Type: Spontaneous
  Country: FR (occurrence: FR)
  Receive Date: 20140311
  Receipt Date: 20140311
  Transmission Date: 20141002
  Serious: Yes (Death)
  Sender: FDA-Public Use
  Company Number: PHHY2014FR028221

PATIENT
  Age: 74 Year
  Sex: Female

DRUGS (7)
  1. ZOPICLONE SANDOZ [Suspect]
     Indication: PRODUCT USED FOR UNKNOWN INDICATION
     Dosage: 1 DF, QD
     Route: 048
     Dates: end: 20080113
  2. CLOZAPINE [Suspect]
     Indication: PSYCHOTIC DISORDER
     Dosage: 25 MG, BID
     Route: 048
     Dates: start: 20080104, end: 20080113
  3. GLUCOPHAGE [Suspect]
     Indication: PRODUCT USED FOR UNKNOWN INDICATION
     Dosage: 2 DF, BID
     Route: 048
     Dates: end: 20080113
  4. AMAREL [Suspect]
     Indication: PRODUCT USED FOR UNKNOWN INDICATION
     Dosage: 1 DF, QD
     Route: 048
     Dates: end: 20080113
  5. MODOPAR [Suspect]
     Indication: PRODUCT USED FOR UNKNOWN INDICATION
     Dosage: 1 DF, TID
     Route: 048
     Dates: end: 20080113
  6. MODOPAR [Suspect]
     Dosage: 1 DF, QD
     Route: 048
     Dates: end: 20080113
  7. AUGMENTIN [Suspect]
     Indication: PRODUCTIVE COUGH
     Dosage: 1 G, TID
     Route: 048
     Dates: start: 20080112, end: 20080113

REACTIONS (1)
  - Arrhythmia [Fatal]
